FAERS Safety Report 11788026 (Version 3)
Quarter: 2016Q1

REPORT INFORMATION
  Report Type: Spontaneous
  Country: BR (occurrence: BR)
  Receive Date: 20151130
  Receipt Date: 20160111
  Transmission Date: 20160525
  Serious: Yes (Other)
  Sender: FDA-Public Use
  Company Number: PHHY2015BR155391

PATIENT
  Age: 46 Year
  Sex: Female
  Weight: 74 kg

DRUGS (4)
  1. PAROXETINE [Concomitant]
     Active Substance: PAROXETINE\PAROXETINE HYDROCHLORIDE
     Indication: PRODUCT USED FOR UNKNOWN INDICATION
     Route: 065
  2. GILENYA [Suspect]
     Active Substance: FINGOLIMOD HYDROCHLORIDE
     Indication: MULTIPLE SCLEROSIS RELAPSE
     Dosage: (GILENYA 0.5 MG 28 CS), QD (IN THE MORNING)
     Route: 048
     Dates: start: 201401, end: 20151107
  3. CLONAZEPAM. [Concomitant]
     Active Substance: CLONAZEPAM
     Indication: SLEEP DISORDER
     Route: 065
  4. GILENYA [Suspect]
     Active Substance: FINGOLIMOD HYDROCHLORIDE
     Dosage: (GILENYA 0.5 MG 28 CS), QD (IN THE MORNING)
     Route: 048
     Dates: start: 20151117

REACTIONS (8)
  - Fall [Unknown]
  - Muscle spasms [Unknown]
  - Stress [Unknown]
  - Muscle rigidity [Unknown]
  - Palpitations [Not Recovered/Not Resolved]
  - Crying [Unknown]
  - Depressed mood [Unknown]
  - Ankle fracture [Recovering/Resolving]

NARRATIVE: CASE EVENT DATE: 20151101
